FAERS Safety Report 17094542 (Version 1)
Quarter: 2019Q4

REPORT INFORMATION
  Report Type: Spontaneous
  Country: CZ (occurrence: CZ)
  Receive Date: 20191129
  Receipt Date: 20191129
  Transmission Date: 20200122
  Serious: Yes (Other)
  Sender: FDA-Public Use
  Company Number: CZ-BAXTER-2019BAX024295

PATIENT
  Age: 52 Year
  Sex: Female

DRUGS (15)
  1. DOXORUBICIN [Concomitant]
     Active Substance: DOXORUBICIN
     Indication: MANTLE CELL LYMPHOMA
     Dosage: R-MAXICHOP
     Route: 065
     Dates: start: 2016
  2. METHYLPREDNISOLONE. [Concomitant]
     Active Substance: METHYLPREDNISOLONE
     Indication: MANTLE CELL LYMPHOMA
     Dosage: PLATINUM REGIMEN R-ESHAP
     Route: 065
     Dates: start: 2016
  3. CYTARABINE. [Concomitant]
     Active Substance: CYTARABINE
     Indication: MANTLE CELL LYMPHOMA
     Dosage: PLATINUM REGIMEN R-ESHAP
     Route: 065
     Dates: start: 2016
  4. CISPLATIN. [Concomitant]
     Active Substance: CISPLATIN
     Indication: MANTLE CELL LYMPHOMA
     Dosage: PLATINUM REGIMEN R-ESHAP
     Route: 065
     Dates: start: 2016
  5. IBRUTINIB [Concomitant]
     Active Substance: IBRUTINIB
     Indication: MANTLE CELL LYMPHOMA
     Route: 065
     Dates: start: 201606
  6. FLUDARABINE [Suspect]
     Active Substance: FLUDARABINE PHOSPHATE
     Indication: BONE MARROW CONDITIONING REGIMEN
     Route: 065
     Dates: start: 2016
  7. RITUXIMAB. [Concomitant]
     Active Substance: RITUXIMAB
     Dosage: PLATINUM REGIMEN R-ESHAP
     Route: 065
     Dates: start: 2016
  8. VINCRISTINE [Concomitant]
     Active Substance: VINCRISTINE
     Indication: MANTLE CELL LYMPHOMA
     Dosage: R-MAXICHOP
     Route: 065
     Dates: start: 2016
  9. ENDOXAN 1G [Suspect]
     Active Substance: CYCLOPHOSPHAMIDE
     Indication: PROPHYLAXIS AGAINST GRAFT VERSUS HOST DISEASE
     Route: 065
     Dates: start: 2016
  10. IBRUTINIB [Concomitant]
     Active Substance: IBRUTINIB
     Dosage: DOSE REDUCED
     Route: 065
     Dates: start: 2016
  11. PREDNISOLONE. [Concomitant]
     Active Substance: PREDNISOLONE
     Indication: MANTLE CELL LYMPHOMA
     Dosage: R-MAXICHOP
     Route: 065
     Dates: start: 2016
  12. RITUXIMAB. [Concomitant]
     Active Substance: RITUXIMAB
     Indication: MANTLE CELL LYMPHOMA
     Dosage: R-MAXICHOP
     Route: 065
     Dates: start: 2016
  13. CYCLOPHOSPHAMIDE. [Concomitant]
     Active Substance: CYCLOPHOSPHAMIDE
     Indication: MANTLE CELL LYMPHOMA
     Dosage: R-MAXICHOP
     Route: 065
     Dates: start: 2016
  14. BUSULFAN. [Suspect]
     Active Substance: BUSULFAN
     Indication: BONE MARROW CONDITIONING REGIMEN
     Route: 065
     Dates: start: 2016
  15. ETOPOSIDE. [Concomitant]
     Active Substance: ETOPOSIDE
     Indication: MANTLE CELL LYMPHOMA
     Dosage: PLATINUM REGIMEN R-ESHAP
     Route: 065
     Dates: start: 2016

REACTIONS (1)
  - Acute graft versus host disease [Recovering/Resolving]
